FAERS Safety Report 4585676-0 (Version None)
Quarter: 2005Q1

REPORT INFORMATION
  Report Type: 
  Country: None (occurrence: None)
  Receive Date: 20050217
  Receipt Date: 20041214
  Transmission Date: 20050727
  Serious: Yes (Other)
  Sender: FDA-Public Use
  Company Number: JP-MERCK-0412USA02153

PATIENT
  Age: 75 Year
  Sex: Male
  Weight: 53 kg

DRUGS (4)
  1. PRIMAXIN [Suspect]
     Indication: POSTOPERATIVE INFECTION
     Route: 042
     Dates: start: 20041208, end: 20041214
  2. GENTACIN [Suspect]
     Route: 042
     Dates: start: 20041125, end: 20041214
  3. [THERAPY UNSPECIFIED] [Concomitant]
     Route: 042
     Dates: start: 20041201, end: 20041207
  4. [THERAPY UNSPECIFIED] [Concomitant]
     Route: 042
     Dates: start: 20041201, end: 20041203

REACTIONS (3)
  - CONVULSION [None]
  - DEPRESSED LEVEL OF CONSCIOUSNESS [None]
  - RENAL FAILURE [None]
